FAERS Safety Report 24080472 (Version 1)
Quarter: 2024Q3

REPORT INFORMATION
  Report Type: Spontaneous
  Country: US (occurrence: US)
  Receive Date: 20240711
  Receipt Date: 20240711
  Transmission Date: 20241017
  Serious: No
  Sender: TEVA
  Company Number: US-TEVA-VS-3217287

PATIENT

DRUGS (1)
  1. CEPHALEXIN [Suspect]
     Active Substance: CEPHALEXIN
     Indication: Tooth abscess
     Route: 065

REACTIONS (5)
  - Diarrhoea [Unknown]
  - Fatigue [Unknown]
  - Abdominal discomfort [Unknown]
  - Product substitution issue [Unknown]
  - Pollakiuria [Unknown]
